FAERS Safety Report 5761137-8 (Version None)
Quarter: 2008Q2

REPORT INFORMATION
  Report Type: 
  Country: None (occurrence: None)
  Receive Date: 20080606
  Receipt Date: 20080527
  Transmission Date: 20081010
  Serious: Yes (Other)
  Sender: FDA-Public Use
  Company Number: A0722352A

PATIENT
  Age: 58 Year
  Sex: Male

DRUGS (7)
  1. AVODART [Suspect]
     Indication: PROSTATOMEGALY
     Dosage: 1CAP PER DAY
     Route: 048
     Dates: start: 20070527, end: 20080213
  2. SYNTHROID [Concomitant]
     Dosage: 168MCG PER DAY
  3. ASPIRIN [Concomitant]
     Dosage: 81MG PER DAY
  4. SIMVASTATIN [Concomitant]
  5. TRICOR [Concomitant]
  6. LISINOPRIL [Concomitant]
     Dosage: 10MG PER DAY
  7. FISH OIL [Concomitant]
     Dosage: 2CAP PER DAY
     Route: 048

REACTIONS (4)
  - BREAST ENLARGEMENT [None]
  - BREAST PAIN [None]
  - BREAST TENDERNESS [None]
  - HEPATIC ENZYME INCREASED [None]
